FAERS Safety Report 21818673 (Version 4)
Quarter: 2023Q1

REPORT INFORMATION
  Report Type: Spontaneous
  Country: US (occurrence: US)
  Receive Date: 20230104
  Receipt Date: 20230228
  Transmission Date: 20230417
  Serious: No
  Sender: FDA-Public Use
  Company Number: US-BRISTOL-MYERS SQUIBB COMPANY-2022-160905

PATIENT
  Age: 75 Year
  Sex: Female

DRUGS (3)
  1. POMALYST [Suspect]
     Active Substance: POMALIDOMIDE
     Indication: Plasma cell myeloma
     Dosage: 21 DAYS ON AND 7 DAYS OFF
     Route: 048
     Dates: start: 20221130
  2. POMALYST [Suspect]
     Active Substance: POMALIDOMIDE
     Dosage: 1 DF: 1 CASULE?FREQ: TAKE 1 CAPSULE BY MOUTH EVERY DAY FOR 21 DAYS ON, 7 DAYS OFF
     Route: 048
  3. POMALYST [Suspect]
     Active Substance: POMALIDOMIDE
     Dosage: TAKE 1 CAPSULE BY MOUTH DAILY FOR 21 DAYS ON, 7 DAYS OFF
     Route: 048

REACTIONS (7)
  - Confusional state [Unknown]
  - Product dose omission issue [Unknown]
  - Tremor [Unknown]
  - Dizziness [Unknown]
  - Peripheral swelling [Unknown]
  - Hypersensitivity [Unknown]
  - Nausea [Unknown]
